FAERS Safety Report 19634483 (Version 1)
Quarter: 2021Q3

REPORT INFORMATION
  Report Type: Spontaneous
  Country: US (occurrence: US)
  Receive Date: 20210729
  Receipt Date: 20210729
  Transmission Date: 20211014
  Serious: No
  Sender: FDA-Public Use
  Company Number: US-PARATEK PHARMACEUTICALS, INC.-2021PTK00094

PATIENT
  Age: 64 Year
  Sex: Female

DRUGS (4)
  1. NUZYRA [Suspect]
     Active Substance: OMADACYCLINE
     Indication: PNEUMONIA
  2. NUZYRA [Suspect]
     Active Substance: OMADACYCLINE
     Indication: DRUG RESISTANCE
  3. NUZYRA [Suspect]
     Active Substance: OMADACYCLINE
     Indication: WATERHOUSE-FRIDERICHSEN SYNDROME
     Dosage: 300 MG, 1X/DAY
     Route: 048
     Dates: start: 20210427
  4. NUZYRA [Suspect]
     Active Substance: OMADACYCLINE
     Indication: MYCOBACTERIAL INFECTION

REACTIONS (3)
  - Nausea [Unknown]
  - Incorrect dose administered [Not Recovered/Not Resolved]
  - Incorrect product administration duration [Not Recovered/Not Resolved]

NARRATIVE: CASE EVENT DATE: 2021
